FAERS Safety Report 17186796 (Version 1)
Quarter: 2019Q4

REPORT INFORMATION
  Report Type: Spontaneous
  Country: CA (occurrence: CA)
  Receive Date: 20191220
  Receipt Date: 20191220
  Transmission Date: 20200122
  Serious: Yes (Hospitalization, Other)
  Sender: FDA-Public Use
  Company Number: CA-JNJFOC-20191225601

PATIENT
  Age: 69 Year
  Sex: Female

DRUGS (6)
  1. VITAMIN D [Concomitant]
     Active Substance: VITAMIN D NOS
  2. AMLODIPINE [Concomitant]
     Active Substance: AMLODIPINE BESYLATE
  3. REMICADE [Suspect]
     Active Substance: INFLIXIMAB
     Indication: CROHN^S DISEASE
     Route: 042
  4. FUROSEMIDE. [Concomitant]
     Active Substance: FUROSEMIDE
  5. RABEPRAZOLE [Concomitant]
     Active Substance: RABEPRAZOLE
  6. USTEKINUMAB [Concomitant]
     Active Substance: USTEKINUMAB
     Indication: CROHN^S DISEASE
     Route: 065

REACTIONS (4)
  - Hepatorenal syndrome [Recovering/Resolving]
  - Acute kidney injury [Recovering/Resolving]
  - Hepatic encephalopathy [Recovering/Resolving]
  - Autoimmune hepatitis [Recovering/Resolving]
